FAERS Safety Report 23950508 (Version 1)
Quarter: 2024Q2

REPORT INFORMATION
  Report Type: Spontaneous
  Country: US (occurrence: US)
  Receive Date: 20240607
  Receipt Date: 20240607
  Transmission Date: 20240715
  Serious: Yes (Death, Hospitalization, Other)
  Sender: FDA-Public Use
  Company Number: US-009507513-2406USA000167

PATIENT
  Age: 59 Year
  Sex: Female

DRUGS (10)
  1. NOXAFIL [Suspect]
     Active Substance: POSACONAZOLE
     Dosage: UNK
     Route: 048
     Dates: end: 20240415
  2. JAKAFI [Suspect]
     Active Substance: RUXOLITINIB
     Indication: Chronic graft versus host disease in eye
     Dosage: UNK
  3. JAKAFI [Suspect]
     Active Substance: RUXOLITINIB
     Indication: Chronic graft versus host disease in skin
  4. JAKAFI [Suspect]
     Active Substance: RUXOLITINIB
     Indication: Chronic graft versus host disease in lung
  5. JAKAFI [Suspect]
     Active Substance: RUXOLITINIB
     Indication: Chronic graft versus host disease in intestine
  6. BELUMOSUDIL [Suspect]
     Active Substance: BELUMOSUDIL
     Dosage: UNK
  7. VORICONAZOLE [Suspect]
     Active Substance: VORICONAZOLE
     Dosage: UNK
     Dates: start: 20240415, end: 20240418
  8. AXATILIMAB [Concomitant]
     Active Substance: AXATILIMAB
     Dosage: UNK
     Dates: start: 20240308, end: 20240321
  9. REZUROCK [Concomitant]
     Active Substance: BELUMOSUDIL
     Dosage: UNK
  10. TACOGEN [Concomitant]
     Dosage: UNK

REACTIONS (21)
  - Death [Fatal]
  - Hypoxia [Unknown]
  - Gastric ulcer [Unknown]
  - Pulmonary mass [Recovering/Resolving]
  - Pneumonia necrotising [Recovering/Resolving]
  - Pneumonia fungal [Recovering/Resolving]
  - Pneumonia [Recovering/Resolving]
  - Encephalopathy [Unknown]
  - Gastrointestinal haemorrhage [Unknown]
  - Hospice care [Unknown]
  - Head injury [Unknown]
  - Citrobacter test positive [Unknown]
  - Enterococcus test positive [Unknown]
  - Pseudomonas test positive [Unknown]
  - Fungal test positive [Unknown]
  - Fall [Unknown]
  - Lung infiltration [Recovering/Resolving]
  - Mental status changes [Unknown]
  - Sinusitis [Unknown]
  - Oesophagitis [Unknown]
  - Asthenia [Recovering/Resolving]

NARRATIVE: CASE EVENT DATE: 20240101
